FAERS Safety Report 8571923-7 (Version None)
Quarter: 2012Q3

REPORT INFORMATION
  Report Type: 
  Country: None (occurrence: None)
  Receive Date: 20120724
  Receipt Date: 20120716
  Transmission Date: 20120928
  Serious: Yes (Hospitalization, Other)
  Sender: FDA-Public Use
  Company Number: AUR-APL-2012-03129

PATIENT
  Age: 68 Year
  Sex: Female

DRUGS (6)
  1. WELLBUTRIN [Suspect]
     Indication: ANXIETY
  2. PAXIL [Suspect]
     Indication: ANXIETY
  3. FENTANYL [Suspect]
     Indication: ANAESTHESIA
     Dosage: (100 MCG) ; (50 MCG) ; (100 MCG)
  4. FENTANYL [Suspect]
     Indication: ANALGESIC THERAPY
     Dosage: (100 MCG) ; (50 MCG) ; (100 MCG)
  5. CYMBALTA [Suspect]
     Indication: ANXIETY
  6. ONDANSETRON [Suspect]
     Indication: PRODUCT USED FOR UNKNOWN INDICATION
     Dosage: (4 MG)

REACTIONS (8)
  - BLOOD PRESSURE INCREASED [None]
  - AGITATION [None]
  - OXYGEN SATURATION DECREASED [None]
  - CONFUSIONAL STATE [None]
  - UNRESPONSIVE TO STIMULI [None]
  - SEROTONIN SYNDROME [None]
  - HYPERREFLEXIA [None]
  - APNOEA [None]
